FAERS Safety Report 21330710 (Version 2)
Quarter: 2022Q4

REPORT INFORMATION
  Report Type: Spontaneous
  Country: US (occurrence: US)
  Receive Date: 20220913
  Receipt Date: 20221110
  Transmission Date: 20230113
  Serious: Yes (Other)
  Sender: FDA-Public Use
  Company Number: US-BRISTOL-MYERS SQUIBB COMPANY-2022-104210

PATIENT
  Age: 70 Year
  Sex: Female
  Weight: 107.05 kg

DRUGS (2)
  1. REVLIMID [Suspect]
     Active Substance: LENALIDOMIDE
     Indication: Plasma cell myeloma
     Dosage: DAILY FOR 21DAYS
     Route: 048
     Dates: start: 20210501
  2. REVLIMID [Suspect]
     Active Substance: LENALIDOMIDE
     Dosage: 3 WEEKS OFF AND 1 WEEK OFF
     Route: 048
     Dates: start: 20210512

REACTIONS (2)
  - Drug intolerance [Unknown]
  - Neuropathy peripheral [Unknown]
